FAERS Safety Report 20613908 (Version 2)
Quarter: 2022Q1

REPORT INFORMATION
  Report Type: Spontaneous
  Country: JP (occurrence: JP)
  Receive Date: 20220319
  Receipt Date: 20220325
  Transmission Date: 20220424
  Serious: Yes (Life-Threatening, Hospitalization, Other)
  Sender: FDA-Public Use
  Company Number: JP-Accord-257756

PATIENT
  Age: 72 Year
  Sex: Female

DRUGS (2)
  1. METHOTREXATE [Suspect]
     Active Substance: METHOTREXATE
     Indication: Rheumatoid arthritis
  2. IGURATIMOD [Suspect]
     Active Substance: IGURATIMOD
     Indication: Rheumatoid arthritis

REACTIONS (7)
  - Varicella zoster pneumonia [Recovered/Resolved with Sequelae]
  - Epstein-Barr virus infection reactivation [Recovered/Resolved]
  - Encephalitis [Unknown]
  - Varicella zoster virus infection [Unknown]
  - Hepatic neoplasm [Unknown]
  - Lymphoproliferative disorder [Recovering/Resolving]
  - Staphylococcal infection [Unknown]
